FAERS Safety Report 6175214-3 (Version None)
Quarter: 2009Q2

REPORT INFORMATION
  Report Type: 
  Country: None (occurrence: None)
  Receive Date: 20090430
  Receipt Date: 20090126
  Transmission Date: 20091009
  Serious: No
  Sender: FDA-Public Use
  Company Number: US-ASTRAZENECA-2009UW02340

PATIENT
  Sex: Female

DRUGS (2)
  1. NEXIUM [Suspect]
     Dosage: UNKNOWN
     Route: 048
  2. UNSPECIFIED [Suspect]
     Indication: PSORIASIS
     Dosage: UNKNOWNU
     Route: 065

REACTIONS (1)
  - AMNESIA [None]
